FAERS Safety Report 11766100 (Version 2)
Quarter: 2015Q4

REPORT INFORMATION
  Report Type: Spontaneous
  Country: US (occurrence: US)
  Receive Date: 20151122
  Receipt Date: 20151214
  Transmission Date: 20160304
  Serious: Yes (Other)
  Sender: FDA-Public Use
  Company Number: US-HOSPIRA-3077929

PATIENT
  Age: 48 Year
  Sex: Male
  Weight: 81.3 kg

DRUGS (8)
  1. ALOXI [Concomitant]
     Active Substance: PALONOSETRON HYDROCHLORIDE
     Indication: PREMEDICATION
     Dosage: ONCE
     Route: 040
  2. HEPARIN LOCK FLUSH [Concomitant]
     Active Substance: HEPARIN SODIUM
     Indication: PRODUCT USED FOR UNKNOWN INDICATION
     Dosage: 100 UNITS/ML, ONCE
     Route: 040
  3. OXALIPLATIN. [Suspect]
     Active Substance: OXALIPLATIN
     Indication: RECTAL CANCER
     Dosage: ONCE
     Route: 041
     Dates: start: 20151201, end: 20151201
  4. DECADRON [Concomitant]
     Active Substance: DEXAMETHASONE
     Indication: PREMEDICATION
     Dosage: ONCE
     Route: 042
  5. OXALIPLATIN. [Suspect]
     Active Substance: OXALIPLATIN
     Indication: RECTAL CANCER
     Dosage: 2 HOUR INFUSION
     Route: 041
     Dates: start: 20151110, end: 20151110
  6. OXALIPLATIN. [Suspect]
     Active Substance: OXALIPLATIN
     Indication: RECTAL CANCER
     Dosage: 2 HOUR INFUSION
     Route: 041
     Dates: start: 20151110, end: 20151110
  7. DEXTROSE. [Concomitant]
     Active Substance: DEXTROSE
     Indication: PRODUCT USED FOR UNKNOWN INDICATION
     Dosage: ONCE
     Route: 042
  8. OXALIPLATIN. [Suspect]
     Active Substance: OXALIPLATIN
     Indication: RECTAL CANCER
     Dosage: ONCE
     Route: 041
     Dates: start: 20151201, end: 20151201

REACTIONS (6)
  - Paraesthesia [Recovering/Resolving]
  - Blepharospasm [Recovering/Resolving]
  - Paraesthesia [Recovering/Resolving]
  - Muscle spasms [Recovering/Resolving]
  - Muscle spasms [Recovering/Resolving]
  - Blepharospasm [Recovering/Resolving]

NARRATIVE: CASE EVENT DATE: 20151110
